FAERS Safety Report 8057957-X (Version None)
Quarter: 2012Q1

REPORT INFORMATION
  Report Type: 
  Country: None (occurrence: None)
  Receive Date: 20120120
  Receipt Date: 20120116
  Transmission Date: 20120608
  Serious: Yes (Hospitalization)
  Sender: FDA-Public Use
  Company Number: US-PFIZER INC-2011217156

PATIENT
  Sex: Female
  Weight: 92.971 kg

DRUGS (18)
  1. PRAVASTATIN [Concomitant]
     Indication: HYPERTENSION
     Dosage: 80 MG, DAILY
  2. AMITRIPTYLINE [Concomitant]
     Indication: DEPRESSION
     Dosage: 100 MG, 2X/DAY
  3. CITALOPRAM [Concomitant]
     Indication: DEPRESSION
     Dosage: 40 MG, DAILY
  4. METOPROLOL [Concomitant]
     Indication: HYPERTENSION
     Dosage: 100 MG, DAILY
  5. FLOVENT [Suspect]
     Indication: ASTHMA
     Dosage: UNK
  6. FISH OIL [Concomitant]
     Indication: SUPPLEMENTATION THERAPY
     Dosage: UNK
  7. GLUCOTROL XL [Suspect]
     Indication: DIABETES MELLITUS
     Dosage: UNK
     Dates: start: 20061201
  8. BENADRYL [Suspect]
     Indication: HYPERSENSITIVITY
     Dosage: UNK
     Dates: start: 20120115
  9. OMEPRAZOLE [Concomitant]
     Indication: GASTROOESOPHAGEAL REFLUX DISEASE
     Dosage: 20 MG, 2X/DAY
  10. ACTOS [Concomitant]
     Indication: DIABETES MELLITUS
     Dosage: 50 MG, DAILY
  11. LYRICA [Suspect]
     Indication: NEUROPATHY PERIPHERAL
     Dosage: UNK
     Dates: start: 20111001, end: 20120114
  12. METFORMIN [Concomitant]
     Indication: DIABETES MELLITUS
     Dosage: 1000 MG, 2X/DAY
  13. FUROSEMIDE [Concomitant]
     Indication: FLUID RETENTION
     Dosage: 20 MG, DAILY
  14. RAPAMUNE [Concomitant]
     Indication: KIDNEY TRANSPLANT REJECTION
     Dosage: 4 MG, DAILY
  15. PREDNISONE [Concomitant]
     Indication: KIDNEY TRANSPLANT REJECTION
     Dosage: 5 MG, DAILY
  16. MYFORTIC [Concomitant]
     Indication: KIDNEY TRANSPLANT REJECTION
     Dosage: 600 MG, 2X/DAY
  17. MULTI-VITAMINS [Concomitant]
     Indication: SUPPLEMENTATION THERAPY
     Dosage: UNK
  18. POTASSIUM CHLORIDE [Concomitant]
     Dosage: 20 MG, 4X/DAY

REACTIONS (9)
  - SOMNOLENCE [None]
  - ANXIETY [None]
  - PAIN IN EXTREMITY [None]
  - DISTURBANCE IN ATTENTION [None]
  - HYPERSENSITIVITY [None]
  - DRUG INEFFECTIVE [None]
  - ACCIDENTAL OVERDOSE [None]
  - PAIN [None]
  - NASOPHARYNGITIS [None]
